FAERS Safety Report 8100048-X (Version None)
Quarter: 2012Q1

REPORT INFORMATION
  Report Type: 
  Country: None (occurrence: None)
  Receive Date: 20120129
  Receipt Date: 20111103
  Transmission Date: 20120608
  Serious: No
  Sender: FDA-Public Use
  Company Number: US-ABBOTT-11P-163-0870908-00

PATIENT
  Age: 69 Year
  Sex: Male

DRUGS (7)
  1. CLOBETASOL [Concomitant]
     Indication: PSORIASIS
     Route: 061
  2. PRAVASTATIN [Concomitant]
     Indication: BLOOD CHOLESTEROL INCREASED
  3. HUMIRA [Suspect]
     Indication: PSORIATIC ARTHROPATHY
  4. XALATAN [Concomitant]
     Indication: GLAUCOMA
     Dosage: IN RIGHT EYE
  5. LOSARTAN/HYDROCHLOORTHIAZIDE [Concomitant]
     Indication: HYPERTENSION
     Dosage: 100/12.5 ONCE DAILY
  6. METOPROLOL TARTRATE [Concomitant]
     Indication: HYPERTENSION
  7. HYDROCHLOROTHIAZIDE [Concomitant]
     Indication: HYPERTENSION

REACTIONS (1)
  - PAIN [None]
